FAERS Safety Report 13671573 (Version 1)
Quarter: 2017Q2

REPORT INFORMATION
  Report Type: Spontaneous
  Country: US (occurrence: US)
  Receive Date: 20170620
  Receipt Date: 20170620
  Transmission Date: 20170830
  Serious: No
  Sender: FDA-Public Use
  Company Number: US-ROCHE-1378567

PATIENT
  Sex: Male

DRUGS (2)
  1. XELODA [Suspect]
     Active Substance: CAPECITABINE
     Indication: PANCREATIC CARCINOMA
     Dosage: 14 DAYS ON, 7 DAYS OFF 2 TABS TWICE A DAY
     Route: 048
     Dates: start: 20140313
  2. XELODA [Suspect]
     Active Substance: CAPECITABINE
     Dosage: 14 DAYS ON, 7 DAYS OFF 2 TABS TWICE A DAY
     Route: 048
     Dates: start: 20140313

REACTIONS (3)
  - Decreased appetite [Unknown]
  - Dysphagia [Unknown]
  - Abdominal pain upper [Unknown]
